FAERS Safety Report 12476899 (Version 2)
Quarter: 2016Q3

REPORT INFORMATION
  Report Type: Spontaneous
  Country: NO (occurrence: NO)
  Receive Date: 20160617
  Receipt Date: 20160701
  Transmission Date: 20161109
  Serious: Yes (Other)
  Sender: FDA-Public Use
  Company Number: PHHY2016NO080664

PATIENT
  Age: 14 Year
  Sex: Male
  Weight: 45 kg

DRUGS (1)
  1. RITALIN LA [Suspect]
     Active Substance: METHYLPHENIDATE HYDROCHLORIDE
     Indication: ATTENTION DEFICIT/HYPERACTIVITY DISORDER
     Dosage: 40 MG, QD AFTER THE DINNER
     Route: 048
     Dates: start: 20160512, end: 20160512

REACTIONS (11)
  - Abnormal behaviour [Unknown]
  - Crying [Unknown]
  - Logorrhoea [Unknown]
  - Fatigue [Unknown]
  - Psychomotor hyperactivity [Unknown]
  - Memory impairment [Unknown]
  - Mania [Recovered/Resolved]
  - Mood altered [Unknown]
  - Acute psychosis [Recovered/Resolved]
  - Depressed mood [Unknown]
  - Sleep disorder [Unknown]

NARRATIVE: CASE EVENT DATE: 20160512
